FAERS Safety Report 4836822-2 (Version None)
Quarter: 2005Q4

REPORT INFORMATION
  Report Type: 
  Country: None (occurrence: None)
  Receive Date: 20051123
  Receipt Date: 20051004
  Transmission Date: 20060501
  Serious: Yes (Hospitalization)
  Sender: FDA-Public Use
  Company Number: US-MERCK-0510USA03071

PATIENT
  Age: 63 Year
  Sex: Female
  Weight: 86 kg

DRUGS (12)
  1. VIOXX [Suspect]
     Indication: ARTHRITIS
     Route: 048
     Dates: start: 20000802, end: 20010414
  2. LANOXIN [Concomitant]
     Route: 065
  3. CIMETIDINE [Concomitant]
     Route: 065
  4. QUINIDEX [Concomitant]
     Route: 065
  5. NEURONTIN [Concomitant]
     Route: 065
  6. GLUCOPHAGE [Concomitant]
     Route: 065
  7. ETODOLAC [Concomitant]
     Route: 065
  8. GLYBURIDE [Concomitant]
     Route: 065
  9. ACETAMINOPHEN [Concomitant]
     Route: 065
  10. LORAZEPAM [Concomitant]
     Route: 065
  11. MIACALCIN [Concomitant]
     Route: 065
  12. LORATADINE [Concomitant]
     Route: 065

REACTIONS (2)
  - CEREBROVASCULAR ACCIDENT [None]
  - TRANSIENT ISCHAEMIC ATTACK [None]
